FAERS Safety Report 5268054-0 (Version None)
Quarter: 2007Q1

REPORT INFORMATION
  Report Type: 
  Country: None (occurrence: None)
  Receive Date: 20070319
  Receipt Date: 20070305
  Transmission Date: 20070707
  Serious: Yes (Other)
  Sender: FDA-Public Use
  Company Number: PHBS2007TW03935

PATIENT
  Age: 10 Year
  Sex: Male

DRUGS (2)
  1. RITALIN [Suspect]
     Indication: ATTENTION DEFICIT/HYPERACTIVITY DISORDER
     Dosage: 60 MG/DAY
  2. RITALIN [Suspect]
     Dosage: 20 MG, BID

REACTIONS (15)
  - CATARACT [None]
  - CATARACT OPERATION [None]
  - GLAUCOMA [None]
  - GLAUCOMA SURGERY [None]
  - GLAUCOMATOUS OPTIC DISC ATROPHY [None]
  - INCORRECT DOSE ADMINISTERED [None]
  - INTRAOCULAR PRESSURE INCREASED [None]
  - LENS IMPLANT [None]
  - LENTICULAR OPACITIES [None]
  - OPTIC DISC DISORDER [None]
  - SCOTOMA [None]
  - TRABECULECTOMY [None]
  - VISION BLURRED [None]
  - VISUAL ACUITY REDUCED [None]
  - VISUAL FIELD DEFECT [None]
